FAERS Safety Report 5196191-8 (Version None)
Quarter: 2007Q1

REPORT INFORMATION
  Report Type: 
  Country: None (occurrence: None)
  Receive Date: 20070102
  Receipt Date: 20061222
  Transmission Date: 20070707
  Serious: Yes (Hospitalization)
  Sender: FDA-Public Use
  Company Number: JP-PFIZER INC-2006152622

PATIENT
  Age: 33 Year
  Sex: Male

DRUGS (4)
  1. GABAPEN [Suspect]
     Indication: EPILEPSY
     Dosage: DAILY DOSE:600MG-FREQ:DAILY
     Route: 048
  2. TEGRETOL [Concomitant]
     Route: 048
  3. LANDSEN [Concomitant]
     Route: 048
  4. ALEVIATIN [Concomitant]
     Route: 048

REACTIONS (1)
  - ILEUS [None]
